FAERS Safety Report 25106058 (Version 1)
Quarter: 2025Q1

REPORT INFORMATION
  Report Type: Spontaneous
  Country: CA (occurrence: CA)
  Receive Date: 20250321
  Receipt Date: 20250321
  Transmission Date: 20250409
  Serious: Yes (Other)
  Sender: PFIZER
  Company Number: CA-PFIZER INC-202500058759

PATIENT
  Age: 74 Year
  Sex: Male

DRUGS (4)
  1. VYNDAMAX [Suspect]
     Active Substance: TAFAMIDIS
     Indication: Cardiac amyloidosis
     Dosage: 61 MG, 1X/DAY
     Route: 048
     Dates: start: 20240515
  2. DAPAGLIFLOZIN [Concomitant]
     Active Substance: DAPAGLIFLOZIN
     Indication: Cardiac failure
     Dosage: 10 MG, DAILY
  3. EPLERENONE [Concomitant]
     Active Substance: EPLERENONE
     Indication: Cardiac failure
     Dosage: 25 MG, DAILY
  4. FUROSEMIDE [Concomitant]
     Active Substance: FUROSEMIDE
     Indication: Diuretic therapy
     Dosage: 40 MG, DAILY

REACTIONS (6)
  - Atrial fibrillation [Unknown]
  - Atrial flutter [Unknown]
  - Myocardial infarction [Unknown]
  - Electrocardiogram abnormal [Unknown]
  - QRS axis abnormal [Unknown]
  - Regurgitation [Unknown]

NARRATIVE: CASE EVENT DATE: 20241104
